FAERS Safety Report 5851550-2 (Version None)
Quarter: 2008Q3

REPORT INFORMATION
  Report Type: 
  Country: None (occurrence: None)
  Receive Date: 20080820
  Receipt Date: 20080811
  Transmission Date: 20090109
  Serious: Yes (Hospitalization)
  Sender: FDA-Public Use
  Company Number: GB-ROCHE-575466

PATIENT
  Age: 46 Year
  Sex: Female

DRUGS (4)
  1. PEGASYS [Suspect]
     Indication: HEPATITIS C
     Route: 065
  2. PEGASYS [Suspect]
     Route: 065
     Dates: start: 20080610
  3. RIBAVIRIN [Suspect]
     Indication: HEPATITIS C
     Dosage: REPORTED AS TAKING 3 TABLETS IN THE MORNING AND 3 TABLETS IN THE EVENING.
     Route: 065
  4. STEROID NOS [Concomitant]

REACTIONS (6)
  - BLOOD IRON DECREASED [None]
  - DYSPNOEA [None]
  - FIBROMYALGIA [None]
  - PAIN IN EXTREMITY [None]
  - PLATELET COUNT DECREASED [None]
  - WHITE BLOOD CELL COUNT DECREASED [None]
